FAERS Safety Report 21554436 (Version 1)
Quarter: 2022Q4

REPORT INFORMATION
  Report Type: Report from Study
  Country: US (occurrence: US)
  Receive Date: 20221104
  Receipt Date: 20221104
  Transmission Date: 20230112
  Serious: Yes (Other)
  Sender: FDA-Public Use
  Company Number: US-BRISTOL-MYERS SQUIBB COMPANY-BMS-2022-016446

PATIENT
  Age: 31 Year
  Sex: Female
  Weight: 63.492 kg

DRUGS (5)
  1. NIVOLUMAB [Suspect]
     Active Substance: NIVOLUMAB
     Indication: Hodgkin^s disease
     Route: 042
     Dates: start: 20210412, end: 20210622
  2. BLEOMYCIN [Suspect]
     Active Substance: BLEOMYCIN SULFATE
     Indication: Hodgkin^s disease
     Route: 042
     Dates: start: 20210209, end: 20210323
  3. DACARBAZINE [Suspect]
     Active Substance: DACARBAZINE
     Indication: Hodgkin^s disease
     Route: 042
     Dates: start: 20210209, end: 20210323
  4. DOXORUBICIN [Suspect]
     Active Substance: DOXORUBICIN
     Indication: Hodgkin^s disease
     Route: 042
     Dates: start: 20210209, end: 20210323
  5. VINBLASTINE [Suspect]
     Active Substance: VINBLASTINE
     Indication: Hodgkin^s disease
     Route: 042
     Dates: start: 20210209, end: 20210323

REACTIONS (3)
  - Maternal exposure before pregnancy [Recovered/Resolved]
  - Premature delivery [Unknown]
  - Twin pregnancy [Unknown]

NARRATIVE: CASE EVENT DATE: 20220613
